FAERS Safety Report 4940566-6 (Version None)
Quarter: 2006Q1

REPORT INFORMATION
  Report Type: 
  Country: None (occurrence: None)
  Receive Date: 20060201
  Receipt Date: 20051031
  Transmission Date: 20060701
  Serious: No
  Sender: FDA-Public Use
  Company Number: 2005PV003629

PATIENT
  Age: 58 Year
  Sex: Female
  Weight: 120.2032 kg

DRUGS (3)
  1. BYETTA [Suspect]
     Indication: DIABETES MELLITUS NON-INSULIN-DEPENDENT
     Dosage: 5 MCG;BID;SC
     Route: 058
     Dates: start: 20051001
  2. GLUCOPHAGE [Concomitant]
  3. ACTOS [Concomitant]

REACTIONS (6)
  - CHEST PAIN [None]
  - DYSPEPSIA [None]
  - EAR INFECTION [None]
  - OROPHARYNGEAL SWELLING [None]
  - SINUS HEADACHE [None]
  - UVULITIS [None]
